FAERS Safety Report 6686004-7 (Version None)
Quarter: 2010Q2

REPORT INFORMATION
  Report Type: 
  Country: None (occurrence: None)
  Receive Date: 20100419
  Receipt Date: 20100415
  Transmission Date: 20101027
  Serious: Yes (Life-Threatening, Other)
  Sender: FDA-Public Use
  Company Number: PHHY2010JP22918

PATIENT
  Age: 81 Year
  Sex: Female
  Weight: 47 kg

DRUGS (1)
  1. DIOVAN [Suspect]
     Indication: HYPERTENSION
     Dosage: 80 MG, QD
     Route: 048
     Dates: start: 20100101

REACTIONS (5)
  - ANAEMIA [None]
  - EPISTAXIS [None]
  - HAEMORRHAGE [None]
  - MELAENA [None]
  - OEDEMA [None]
